FAERS Safety Report 4679186-X (Version None)
Quarter: 2005Q2

REPORT INFORMATION
  Report Type: 
  Country: None (occurrence: None)
  Receive Date: 20050526
  Receipt Date: 20050222
  Transmission Date: 20051028
  Serious: Yes (Disabling)
  Sender: FDA-Public Use
  Company Number: WAES 0502USA02802

PATIENT
  Age: 80 Year
  Sex: Male

DRUGS (8)
  1. VYTORIN [Suspect]
     Indication: BLOOD CHOLESTEROL INCREASED
     Dosage: 10-40 MG/DAILY/PO,10-80 MG
     Route: 048
     Dates: start: 20050201, end: 20050201
  2. VYTORIN [Suspect]
     Indication: BLOOD CHOLESTEROL INCREASED
     Dosage: 10-40 MG/DAILY/PO,10-80 MG
     Route: 048
     Dates: start: 20050201, end: 20050220
  3. . [Concomitant]
  4. DILANTIN [Concomitant]
  5. PLAVIX [Concomitant]
  6. PRANDIN [Concomitant]
  7. (THERAPY UNSPECIFIED) [Concomitant]
  8. ASPIRIN [Concomitant]

REACTIONS (1)
  - MYALGIA [None]
